FAERS Safety Report 12582155 (Version 1)
Quarter: 2016Q3

REPORT INFORMATION
  Report Type: Spontaneous
  Country: IT (occurrence: IT)
  Receive Date: 20160722
  Receipt Date: 20160722
  Transmission Date: 20161109
  Serious: Yes (Other)
  Sender: FDA-Public Use
  Company Number: IT-PFIZER INC-2016339423

PATIENT
  Sex: Female

DRUGS (6)
  1. ANTRA /00661201/ [Concomitant]
     Active Substance: OMEPRAZOLE
     Dosage: 1 DF, UNK
     Route: 048
  2. RAMIPRIL. [Suspect]
     Active Substance: RAMIPRIL
     Indication: LEFT VENTRICULAR DYSFUNCTION
     Dosage: 5 MG, DAILY
     Route: 048
     Dates: start: 20151220
  3. DILATREND [Concomitant]
     Active Substance: CARVEDILOL
     Dosage: 1.5 DF, UNK
     Route: 048
  4. CORDARONE [Concomitant]
     Active Substance: AMIODARONE HYDROCHLORIDE
     Dosage: 1 DF, UNK
     Route: 048
  5. COUMADIN [Concomitant]
     Active Substance: WARFARIN SODIUM
     Dosage: UNK
     Route: 048
  6. LASIX [Concomitant]
     Active Substance: FUROSEMIDE
     Dosage: 0.5 DF, UNK
     Route: 048

REACTIONS (2)
  - Hypotension [Recovered/Resolved]
  - Drug intolerance [Unknown]
